FAERS Safety Report 15765605 (Version 5)
Quarter: 2020Q2

REPORT INFORMATION
  Report Type: Spontaneous
  Country: US (occurrence: US)
  Receive Date: 20181227
  Receipt Date: 20200507
  Transmission Date: 20200713
  Serious: Yes (Other)
  Sender: FDA-Public Use
  Company Number: US-SA-2017SA204887

PATIENT
  Age: 49 Year
  Sex: Female

DRUGS (5)
  1. AUBAGIO [Suspect]
     Active Substance: TERIFLUNOMIDE
     Indication: MULTIPLE SCLEROSIS
     Dosage: 14 MG,QD
     Route: 048
     Dates: start: 201707, end: 201906
  2. APAP [Concomitant]
     Active Substance: ACETAMINOPHEN
  3. ALEVE [Concomitant]
     Active Substance: NAPROXEN SODIUM
  4. AUBAGIO [Suspect]
     Active Substance: TERIFLUNOMIDE
     Dosage: 14 MG, QD
     Route: 048
     Dates: start: 2019
  5. TYLENOL [Concomitant]
     Active Substance: ACETAMINOPHEN

REACTIONS (12)
  - Limb discomfort [Unknown]
  - Pain [Unknown]
  - Multiple sclerosis [Unknown]
  - Fungal infection [Unknown]
  - Vulvovaginal burning sensation [Unknown]
  - Muscle strain [Unknown]
  - Uterine leiomyoma [Unknown]
  - Back pain [Unknown]
  - Product dose omission [Unknown]
  - Diarrhoea [Unknown]
  - Pain in extremity [Unknown]
  - Surgery [Unknown]

NARRATIVE: CASE EVENT DATE: 20181130
